FAERS Safety Report 9958603 (Version 2)
Quarter: 2015Q4

REPORT INFORMATION
  Report Type: Report from Study
  Country: US (occurrence: US)
  Receive Date: 20140305
  Receipt Date: 20151119
  Transmission Date: 20160305
  Serious: Yes (Other)
  Sender: FDA-Public Use
  Company Number: US-ROCHE-1346942

PATIENT
  Sex: Female

DRUGS (11)
  1. AVASTIN [Suspect]
     Active Substance: BEVACIZUMAB
     Indication: PRODUCT USED FOR UNKNOWN INDICATION
     Dosage: OD
     Route: 065
     Dates: start: 20110914
  2. ERYTHROMYCIN. [Concomitant]
     Active Substance: ERYTHROMYCIN
     Dosage: X 1 IN OFFICE
     Route: 065
  3. KETOROLAC [Concomitant]
     Active Substance: KETOROLAC\KETOROLAC TROMETHAMINE
     Dosage: 1 DROP QD RIGHT EYE
     Route: 065
  4. HCTZ [Concomitant]
     Active Substance: HYDROCHLOROTHIAZIDE
     Route: 065
  5. BETADINE [Concomitant]
     Active Substance: POVIDONE-IODINE
     Route: 065
  6. MYDRIACYL [Concomitant]
     Active Substance: TROPICAMIDE
     Route: 065
  7. VIGAMOX [Concomitant]
     Active Substance: MOXIFLOXACIN HYDROCHLORIDE
     Dosage: X 3 DAYS
     Route: 065
  8. PHENYLEPHRINE [Concomitant]
     Active Substance: PHENYLEPHRINE\PHENYLEPHRINE HYDROCHLORIDE
     Route: 065
  9. LIDOCAINE. [Concomitant]
     Active Substance: LIDOCAINE
  10. PROPARACAINE [Concomitant]
     Active Substance: PROPARACAINE
     Route: 065
  11. LUCENTIS [Suspect]
     Active Substance: RANIBIZUMAB
     Indication: NEOVASCULAR AGE-RELATED MACULAR DEGENERATION
     Dosage: X 3 MONTHS THEN QUARTERLY
     Route: 050

REACTIONS (12)
  - Cataract [Unknown]
  - Confusional state [Unknown]
  - Cataract nuclear [Unknown]
  - Refraction disorder [Unknown]
  - Cataract subcapsular [Unknown]
  - Accommodation disorder [Unknown]
  - Borderline glaucoma [Unknown]
  - Meibomian gland dysfunction [Unknown]
  - Iridocyclitis [Unknown]
  - Cystoid macular oedema [Unknown]
  - Pupillary light reflex tests abnormal [Unknown]
  - Off label use [Unknown]
